FAERS Safety Report 5415015-4 (Version None)
Quarter: 2007Q3

REPORT INFORMATION
  Report Type: 
  Country: None (occurrence: None)
  Receive Date: 20070814
  Receipt Date: 20070814
  Transmission Date: 20080115
  Serious: Yes (Hospitalization)
  Sender: FDA-Public Use
  Company Number: None

PATIENT
  Age: 56 Year
  Sex: Female

DRUGS (12)
  1. MERCAPTOPURINE [Suspect]
     Indication: CROHN'S DISEASE
  2. NORVASC [Concomitant]
  3. LEXAPRO [Concomitant]
  4. TRAMADOL HCL [Concomitant]
  5. 6-MP [Concomitant]
  6. ASPIRIN [Concomitant]
  7. QUINIC [Concomitant]
  8. AMBIEN [Concomitant]
  9. BENADRYL [Concomitant]
  10. ENSURE [Concomitant]
  11. EYE DROPS [Concomitant]
  12. PREVACID [Concomitant]

REACTIONS (1)
  - PANCREATITIS [None]
